FAERS Safety Report 8773984 (Version 1)
Quarter: 2012Q4

REPORT INFORMATION
  Report Type: 
  Country: US (occurrence: US)
  Receive Date: 20120907
  Receipt Date: 20120907
  Transmission Date: 20130627
  Serious: No
  Sender: FDA-Public Use
  Company Number: US-PFIZER INC-2012220211

PATIENT
  Sex: Male
  Weight: 83.9 kg

DRUGS (3)
  1. EFFEXOR [Suspect]
     Indication: DEPRESSION
     Dosage: 75 mg, 2x/day
  2. DARVOCET-N [Concomitant]
     Indication: PAIN
     Dosage: [DEXTROPROPOXYPHENE NAPSILATE 100 mg]/[PARACETAMOL 650mg], as needed
  3. SOMA [Concomitant]
     Indication: PAIN
     Dosage: 350 mg, UNK

REACTIONS (1)
  - Erectile dysfunction [Not Recovered/Not Resolved]
